FAERS Safety Report 5073133-7 (Version None)
Quarter: 2006Q3

REPORT INFORMATION
  Report Type: 
  Country: None (occurrence: None)
  Receive Date: 20060711
  Receipt Date: 20060608
  Transmission Date: 20061208
  Serious: No
  Sender: FDA-Public Use
  Company Number: 2006S1000108

PATIENT
  Age: 42 Year
  Sex: Female
  Weight: 80 kg

DRUGS (4)
  1. CUBICIN [Suspect]
     Indication: STAPHYLOCOCCAL OSTEOMYELITIS
     Dosage: 300 MG;Q24H;IV
     Route: 042
     Dates: start: 20060606
  2. VANCOMYCIN [Concomitant]
  3. LINEZOLID [Concomitant]
  4. RIFAMPIN [Concomitant]

REACTIONS (2)
  - CHILLS [None]
  - MYALGIA [None]
